FAERS Safety Report 9302603 (Version 4)
Quarter: 2013Q3

REPORT INFORMATION
  Report Type: Spontaneous
  Country: DE (occurrence: DE)
  Receive Date: 20130522
  Receipt Date: 20130828
  Transmission Date: 20140515
  Serious: Yes (Other)
  Sender: FDA-Public Use
  Company Number: DE-PFIZER INC-2013156169

PATIENT
  Age: 84 Year
  Sex: Male
  Weight: 70 kg

DRUGS (3)
  1. XALATAN [Suspect]
     Indication: INTRAOCULAR PRESSURE INCREASED
     Dosage: 1 GTT, 1X/DAY
     Route: 047
     Dates: start: 201106, end: 201304
  2. SIMVASTATIN [Concomitant]
     Indication: BLOOD CHOLESTEROL INCREASED
     Dosage: 20 MG, 1X/DAY
     Route: 048
     Dates: start: 2011, end: 201305
  3. RAMIPRIL [Concomitant]
     Indication: BLOOD PRESSURE INCREASED
     Dosage: 5 MG, 1X/DAY
     Route: 048
     Dates: start: 2012, end: 201305

REACTIONS (5)
  - Circulatory collapse [Recovered/Resolved]
  - Nausea [Recovered/Resolved]
  - Dyspnoea [Recovered/Resolved]
  - Eye irritation [Recovered/Resolved]
  - Product quality issue [Recovered/Resolved]
